FAERS Safety Report 6549869-5 (Version None)
Quarter: 2010Q1

REPORT INFORMATION
  Report Type: 
  Country: None (occurrence: None)
  Receive Date: 20100125
  Receipt Date: 20100118
  Transmission Date: 20100710
  Serious: Yes (Life-Threatening, Hospitalization, Other)
  Sender: FDA-Public Use
  Company Number: ES-ABBOTT-10P-144-0620090-00

PATIENT
  Age: 10 Year
  Sex: Male

DRUGS (5)
  1. HUMIRA [Suspect]
     Indication: CROHN'S DISEASE
     Route: 058
     Dates: start: 20091001
  2. HUMIRA [Suspect]
     Route: 058
  3. HUMIRA [Suspect]
     Route: 058
     Dates: end: 20091201
  4. HUMIRA [Suspect]
     Route: 058
     Dates: start: 20091201, end: 20100106
  5. CORTICOIDS [Suspect]
     Indication: CROHN'S DISEASE
     Route: 048
     Dates: start: 20091222

REACTIONS (4)
  - CARDIAC FAILURE ACUTE [None]
  - DISSEMINATED INTRAVASCULAR COAGULATION [None]
  - DRUG INEFFECTIVE [None]
  - SEPSIS [None]
